FAERS Safety Report 22265965 (Version 9)
Quarter: 2023Q4

REPORT INFORMATION
  Report Type: Report from Study
  Country: BR (occurrence: BR)
  Receive Date: 20230428
  Receipt Date: 20231006
  Transmission Date: 20240109
  Serious: Yes (Hospitalization, Other)
  Sender: FDA-Public Use
  Company Number: BR-JNJFOC-20230453982

PATIENT
  Age: 68 Year
  Sex: Female
  Weight: 69 kg

DRUGS (3)
  1. SIMPONI [Suspect]
     Active Substance: GOLIMUMAB
     Indication: Rheumatoid arthritis
     Dosage: LAST DRUG APPLICATION: 3-SEP-2023
     Route: 058
     Dates: start: 20220807
  2. SIMPONI [Suspect]
     Active Substance: GOLIMUMAB
     Route: 058
  3. HYDROXYCHLOROQUINE SULFATE [Concomitant]
     Active Substance: HYDROXYCHLOROQUINE SULFATE

REACTIONS (11)
  - Dizziness [Not Recovered/Not Resolved]
  - Haemorrhage [Unknown]
  - Fall [Unknown]
  - Head injury [Recovered/Resolved]
  - Arrhythmia [Recovered/Resolved]
  - Syncope [Unknown]
  - Rheumatoid arthritis [Recovering/Resolving]
  - Infection [Unknown]
  - Impatience [Unknown]
  - Nausea [Unknown]
  - Inappropriate schedule of product administration [Unknown]

NARRATIVE: CASE EVENT DATE: 20230101
